FAERS Safety Report 7304108-2 (Version None)
Quarter: 2011Q1

REPORT INFORMATION
  Report Type: 
  Country: None (occurrence: None)
  Receive Date: 20110221
  Receipt Date: 20110215
  Transmission Date: 20110831
  Serious: Yes (Death, Congenital Anomaly)
  Sender: FDA-Public Use
  Company Number: PHHY2010FR52415

PATIENT

DRUGS (3)
  1. IMUREL [Concomitant]
     Indication: RENAL DISORDER
     Dosage: 75 MG
     Dates: start: 20100101
  2. NEORAL [Suspect]
     Dosage: MATERNAL DOSE: 130 MG DAILY
     Route: 064
     Dates: start: 20100101
  3. NEORAL [Suspect]
     Dosage: MATERNAL DOSE: 140 MG DAILY
     Route: 064
     Dates: start: 20100301

REACTIONS (3)
  - ABORTION SPONTANEOUS [None]
  - DRUG EXPOSURE DURING PREGNANCY [None]
  - FOETAL MALFORMATION [None]
